FAERS Safety Report 8501514-5 (Version None)
Quarter: 2012Q3

REPORT INFORMATION
  Report Type: 
  Country: None (occurrence: None)
  Receive Date: 20120710
  Receipt Date: 20120706
  Transmission Date: 20120928
  Serious: Yes (Death, Hospitalization)
  Sender: FDA-Public Use
  Company Number: AR-ABBOTT-12P-007-0947781-00

PATIENT
  Sex: Female

DRUGS (4)
  1. TMS/SMX [Concomitant]
     Indication: PROPHYLAXIS
     Dosage: 160/800
  2. KALETRA [Suspect]
     Indication: HIV INFECTION
     Route: 048
     Dates: start: 20120605, end: 20120627
  3. AZITHROMYCIN [Concomitant]
     Indication: PROPHYLAXIS
     Route: 047
  4. LAMIVUDINE [Concomitant]
     Indication: HIV INFECTION
     Route: 048
     Dates: start: 20120605

REACTIONS (2)
  - RESPIRATORY FAILURE [None]
  - HYPOKALAEMIA [None]
